FAERS Safety Report 5885195-5 (Version None)
Quarter: 2008Q3

REPORT INFORMATION
  Report Type: 
  Country: None (occurrence: None)
  Receive Date: 20080916
  Receipt Date: 20080904
  Transmission Date: 20090109
  Serious: Yes (Death, Hospitalization, Other)
  Sender: FDA-Public Use
  Company Number: FR-WYE-H05103908

PATIENT
  Sex: Male

DRUGS (10)
  1. INIPOMP [Suspect]
     Dosage: 20 MG, FREQUENCY UNKNOWN
     Route: 048
  2. CIPROFLOXACIN HYDROCHLORIDE [Suspect]
     Indication: DIABETIC FOOT
     Route: 048
     Dates: start: 20080206, end: 20080304
  3. NITROGLYCERIN [Suspect]
     Indication: DIABETIC FOOT
     Dates: start: 20080206, end: 20080304
  4. TRINITRIN [Concomitant]
     Dosage: UNKNOWN
  5. CEFTAZIDIME [Suspect]
     Indication: ANGINA PECTORIS
     Route: 062
     Dates: end: 20080516
  6. CLOXACILLIN SODIUM [Suspect]
     Indication: DIABETIC FOOT
     Dosage: UNKNOWN
     Dates: start: 20080112, end: 20080122
  7. AMOXICILLIN + CLAVULANATE POTASSIUM [Suspect]
     Indication: DIABETIC FOOT
     Dosage: UNKNOWN
     Dates: start: 20080123, end: 20080206
  8. OFLOXACIN [Suspect]
     Indication: DIABETIC FOOT
     Dosage: UNKNOWN
     Dates: end: 20080206
  9. LASIX [Suspect]
     Indication: HYPERTENSION
     Route: 048
  10. DIAMICRON [Suspect]
     Indication: DIABETES MELLITUS
     Route: 048
     Dates: end: 20080305

REACTIONS (12)
  - BRONCHIAL OBSTRUCTION [None]
  - CARDIAC FAILURE [None]
  - CHOLESTASIS [None]
  - CHOLESTATIC LIVER INJURY [None]
  - CONDITION AGGRAVATED [None]
  - GASTROINTESTINAL HAEMORRHAGE [None]
  - HAEMORRHAGE [None]
  - HAEMORRHAGIC DISORDER [None]
  - MYOCARDIAL INFARCTION [None]
  - RENAL FAILURE ACUTE [None]
  - RESPIRATORY DISTRESS [None]
  - VITAMIN K DEFICIENCY [None]
